FAERS Safety Report 20377763 (Version 2)
Quarter: 2022Q1

REPORT INFORMATION
  Report Type: Report from Study
  Country: US (occurrence: US)
  Receive Date: 20220126
  Receipt Date: 20220202
  Transmission Date: 20220423
  Serious: Yes (Other)
  Sender: FDA-Public Use
  Company Number: US-INSMED, INC.-2022-00106-US

PATIENT
  Age: 62 Year
  Sex: Male

DRUGS (1)
  1. ARIKAYCE [Suspect]
     Active Substance: AMIKACIN
     Indication: Mycobacterium avium complex infection
     Dosage: 590 MILLIGRAM, QD
     Route: 055
     Dates: start: 20220112, end: 20220116

REACTIONS (19)
  - Oxygen saturation decreased [Unknown]
  - Dyspnoea [Not Recovered/Not Resolved]
  - Respiratory tract congestion [Recovered/Resolved]
  - Respiratory tract congestion [Not Recovered/Not Resolved]
  - Chest expansion decreased [Unknown]
  - Feeding disorder [Unknown]
  - Loss of personal independence in daily activities [Unknown]
  - Sputum retention [Unknown]
  - Peripheral coldness [Unknown]
  - Ear congestion [Recovered/Resolved]
  - Eye irritation [Unknown]
  - Hypoaesthesia [Unknown]
  - Head discomfort [Unknown]
  - Productive cough [Unknown]
  - Aphonia [Recovered/Resolved]
  - Chest discomfort [Not Recovered/Not Resolved]
  - Dysphonia [Recovering/Resolving]
  - Unevaluable event [Unknown]
  - Incorrect dose administered [Unknown]

NARRATIVE: CASE EVENT DATE: 20220101
